FAERS Safety Report 8891038 (Version 3)
Quarter: 2013Q1

REPORT INFORMATION
  Report Type: Spontaneous
  Country: US (occurrence: US)
  Receive Date: 20121107
  Receipt Date: 20130227
  Transmission Date: 20140127
  Serious: Yes (Other)
  Sender: FDA-Public Use
  Company Number: US-ABBOTT-12P-163-0976989-00

PATIENT
  Sex: Male
  Weight: 77.63 kg

DRUGS (28)
  1. NORVIR [Suspect]
     Indication: PRODUCT USED FOR UNKNOWN INDICATION
     Route: 048
     Dates: start: 2002
  2. LIPITOR [Suspect]
     Indication: PRODUCT USED FOR UNKNOWN INDICATION
     Dates: start: 201112, end: 201208
  3. VIREAD [Suspect]
     Indication: HIV INFECTION
     Dates: start: 200202, end: 20120820
  4. ISENTRESS [Suspect]
     Indication: HIV INFECTION
  5. ZIAGEN [Suspect]
     Indication: HIV INFECTION
     Route: 048
     Dates: start: 20080320
  6. VALTREX [Suspect]
     Indication: HERPES ZOSTER
  7. ETRAVIRINE [Suspect]
     Indication: PRODUCT USED FOR UNKNOWN INDICATION
  8. STATINS [Suspect]
     Indication: PRODUCT USED FOR UNKNOWN INDICATION
  9. DARUNAVIR [Suspect]
     Indication: PRODUCT USED FOR UNKNOWN INDICATION
  10. CARNITINE [Suspect]
     Indication: PRODUCT USED FOR UNKNOWN INDICATION
  11. ACETYLCARNITINE [Suspect]
     Indication: PRODUCT USED FOR UNKNOWN INDICATION
  12. FISH OIL [Suspect]
     Indication: PRODUCT USED FOR UNKNOWN INDICATION
  13. UNSPECIFIED [Suspect]
     Indication: PRODUCT USED FOR UNKNOWN INDICATION
  14. ERGOCALCIFEROL [Suspect]
     Indication: PRODUCT USED FOR UNKNOWN INDICATION
  15. VITAMIN E [Suspect]
     Indication: PRODUCT USED FOR UNKNOWN INDICATION
  16. SELENIUM [Suspect]
     Indication: PRODUCT USED FOR UNKNOWN INDICATION
  17. SILYBUM MARIANUM SEED [Suspect]
     Indication: PRODUCT USED FOR UNKNOWN INDICATION
  18. ALFALFA [Suspect]
     Indication: PRODUCT USED FOR UNKNOWN INDICATION
  19. PYRIDOXINE [Suspect]
     Indication: PRODUCT USED FOR UNKNOWN INDICATION
  20. RIBOFLAVIN [Suspect]
     Indication: PRODUCT USED FOR UNKNOWN INDICATION
  21. THIOCTIC ACID TROMETHAMINE [Suspect]
     Indication: PRODUCT USED FOR UNKNOWN INDICATION
  22. UBIDECARENONE [Suspect]
     Indication: PRODUCT USED FOR UNKNOWN INDICATION
  23. CHOLINE BITARTRATE [Suspect]
     Indication: PRODUCT USED FOR UNKNOWN INDICATION
  24. PRIZISTA [Concomitant]
     Indication: HIV INFECTION
  25. INTELENCE [Concomitant]
     Indication: HIV INFECTION
  26. VALCYCLOVIR [Concomitant]
     Indication: HERPES ZOSTER
  27. LEVOCARNITINE [Concomitant]
     Indication: BLOOD CHOLESTEROL INCREASED
  28. MANY SUPPLEMENTS [Concomitant]
     Indication: PRODUCT USED FOR UNKNOWN INDICATION

REACTIONS (13)
  - Mitochondrial toxicity [Not Recovered/Not Resolved]
  - H1N1 influenza [Unknown]
  - Neuropathy peripheral [Recovering/Resolving]
  - Hypoaesthesia [Not Recovered/Not Resolved]
  - Paraesthesia [Not Recovered/Not Resolved]
  - Neuropathy peripheral [Not Recovered/Not Resolved]
  - Tinnitus [Recovering/Resolving]
  - Blood magnesium increased [Recovering/Resolving]
  - Eye pain [Unknown]
  - Gait disturbance [Unknown]
  - Nervous system disorder [Recovering/Resolving]
  - Paraesthesia [Recovering/Resolving]
  - Adverse drug reaction [Unknown]
